FAERS Safety Report 9736473 (Version 3)
Quarter: 2014Q1

REPORT INFORMATION
  Report Type: Spontaneous
  Country: US (occurrence: US)
  Receive Date: 20131206
  Receipt Date: 20140103
  Transmission Date: 20141002
  Serious: No
  Sender: FDA-Public Use
  Company Number: US-PFIZER INC-2013347011

PATIENT
  Age: 57 Year
  Sex: Female

DRUGS (2)
  1. CELEBREX [Suspect]
     Indication: ARTHRITIS
     Dosage: UNK
     Route: 048
     Dates: start: 2013, end: 201311
  2. OMEPRAZOLE [Concomitant]
     Dosage: 40 MG, UNK

REACTIONS (2)
  - Arthralgia [Unknown]
  - Pain [Unknown]
